FAERS Safety Report 4852170-9 (Version None)
Quarter: 2005Q4

REPORT INFORMATION
  Report Type: 
  Country: None (occurrence: None)
  Receive Date: 20051123
  Receipt Date: 20050804
  Transmission Date: 20060501
  Serious: No
  Sender: FDA-Public Use
  Company Number: 216672

PATIENT
  Sex: Female

DRUGS (1)
  1. RAPTIVA [Suspect]

REACTIONS (3)
  - DYSPNOEA [None]
  - HEADACHE [None]
  - NASOPHARYNGITIS [None]
